FAERS Safety Report 5867378-3 (Version None)
Quarter: 2008Q3

REPORT INFORMATION
  Report Type: 
  Country: None (occurrence: None)
  Receive Date: 20080902
  Receipt Date: 20080825
  Transmission Date: 20090109
  Serious: Yes (Other)
  Sender: FDA-Public Use
  Company Number: PHBS2008ES05532

PATIENT
  Age: 25 Year
  Sex: Female

DRUGS (2)
  1. DEFEROXAMINE MESYLATE [Suspect]
     Indication: THALASSAEMIA BETA
  2. RED BLOOD CELLS [Concomitant]

REACTIONS (2)
  - CAESAREAN SECTION [None]
  - DRUG EXPOSURE DURING PREGNANCY [None]
